FAERS Safety Report 4335186-0 (Version None)
Quarter: 2004Q2

REPORT INFORMATION
  Report Type: 
  Country: None (occurrence: None)
  Receive Date: 20040408
  Receipt Date: 20040325
  Transmission Date: 20050107
  Serious: Yes (Other)
  Sender: FDA-Public Use
  Company Number: PHBS2004CA04083

PATIENT
  Age: 82 Year
  Weight: 44 kg

DRUGS (3)
  1. DIOVAN [Suspect]
     Dosage: 80 MG/DAY
     Route: 048
     Dates: start: 20030923, end: 20040308
  2. ACTONEL [Concomitant]
  3. CALCIUM W/VITAMIN D NOS [Concomitant]

REACTIONS (2)
  - BLOOD CHLORIDE DECREASED [None]
  - HYPONATRAEMIA [None]
